FAERS Safety Report 11632543 (Version 2)
Quarter: 2015Q4

REPORT INFORMATION
  Report Type: Report from Study
  Country: US (occurrence: US)
  Receive Date: 20151015
  Receipt Date: 20151029
  Transmission Date: 20160304
  Serious: Yes (Hospitalization, Other)
  Sender: FDA-Public Use
  Company Number: US-GILEAD-2015-0176793

PATIENT
  Age: 83 Year
  Sex: Female

DRUGS (6)
  1. ADEMPAS [Suspect]
     Active Substance: RIOCIGUAT
     Indication: PRODUCT USED FOR UNKNOWN INDICATION
     Route: 065
  2. IRON SUPPLEMENT [Concomitant]
     Active Substance: IRON
  3. COUMADIN [Concomitant]
     Active Substance: WARFARIN SODIUM
  4. AMBRISENTAN [Suspect]
     Active Substance: AMBRISENTAN
     Indication: PULMONARY HYPERTENSION
     Dosage: 10 MG, QD
     Route: 065
     Dates: start: 20130819
  5. AMBRISENTAN [Suspect]
     Active Substance: AMBRISENTAN
     Indication: MITRAL VALVE INCOMPETENCE
  6. AMBRISENTAN [Suspect]
     Active Substance: AMBRISENTAN
     Indication: TRICUSPID VALVE INCOMPETENCE

REACTIONS (4)
  - Pneumonia [Unknown]
  - Dry skin [Unknown]
  - Constipation [Unknown]
  - Diarrhoea [Unknown]
